FAERS Safety Report 4499175-8 (Version None)
Quarter: 2004Q4

REPORT INFORMATION
  Report Type: 
  Country: None (occurrence: None)
  Receive Date: 20041111
  Receipt Date: 20040819
  Transmission Date: 20050328
  Serious: Yes (Hospitalization, Disabling, Other)
  Sender: FDA-Public Use
  Company Number: US-GLAXOSMITHKLINE-A0522813A

PATIENT
  Age: 75 Year
  Sex: Male

DRUGS (2)
  1. RELAFEN [Suspect]
     Indication: TENDONITIS
     Route: 048
     Dates: start: 20040803, end: 20040813
  2. NO CONCURRENT MEDICATION [Concomitant]

REACTIONS (2)
  - EOSINOPHILIC PNEUMONIA [None]
  - PNEUMONITIS [None]
